FAERS Safety Report 8256340-1 (Version None)
Quarter: 2012Q2

REPORT INFORMATION
  Report Type: 
  Country: None (occurrence: None)
  Receive Date: 20120402
  Receipt Date: 20120402
  Transmission Date: 20120825
  Serious: Yes (Hospitalization)
  Sender: FDA-Public Use
  Company Number: None

PATIENT
  Age: 95 Year
  Sex: Male
  Weight: 101.6057 kg

DRUGS (1)
  1. PRADAXA [Suspect]
     Indication: ATRIAL FIBRILLATION
     Dosage: 75MG BID PO
     Route: 048
     Dates: start: 20120307, end: 20120320

REACTIONS (4)
  - UPPER GASTROINTESTINAL HAEMORRHAGE [None]
  - HEART RATE INCREASED [None]
  - OESOPHAGEAL ULCER [None]
  - HAEMOGLOBIN DECREASED [None]
